FAERS Safety Report 5246550-X (Version None)
Quarter: 2007Q1

REPORT INFORMATION
  Report Type: 
  Country: None (occurrence: None)
  Receive Date: 20061201
  Receipt Date: 20060814
  Transmission Date: 20070707
  Serious: No
  Sender: FDA-Public Use
  Company Number: 2006PV019398

PATIENT
  Sex: Female

DRUGS (4)
  1. BYETTA [Suspect]
     Dosage: 10 MCG SC
     Route: 058
     Dates: start: 20060101
  2. INSULIN [Concomitant]
  3. ORAL MEDICATION [Concomitant]
  4. DIABETES [Concomitant]

REACTIONS (1)
  - WEIGHT DECREASED [None]
